FAERS Safety Report 14227242 (Version 5)
Quarter: 2020Q3

REPORT INFORMATION
  Report Type: Report from Study
  Country: AU (occurrence: AU)
  Receive Date: 20171127
  Receipt Date: 20200731
  Transmission Date: 20201102
  Serious: Yes (Other)
  Sender: FDA-Public Use
  Company Number: AU-AMGEN-AUSCT2017175588

PATIENT
  Age: 57 Year
  Sex: Female
  Weight: 60 kg

DRUGS (7)
  1. CALCIUM [Concomitant]
     Active Substance: CALCIUM
     Dosage: 600 MILLIGRAM
     Route: 048
     Dates: start: 20110617, end: 20170307
  2. CYCLOPHOSPHAMIDE. [Concomitant]
     Active Substance: CYCLOPHOSPHAMIDE
     Indication: BREAST CANCER STAGE II
     Dosage: UNK
     Dates: start: 20110617, end: 20110819
  3. TAMOXIFEN [Concomitant]
     Active Substance: TAMOXIFEN
     Indication: BREAST CANCER STAGE II
     Dosage: UNK UNK, QD
     Dates: start: 20140205
  4. DOCETAXEL. [Concomitant]
     Active Substance: DOCETAXEL
     Indication: BREAST CANCER STAGE II
     Dosage: UNK
     Dates: start: 20110617, end: 20110819
  5. VITAMIN D [Concomitant]
     Active Substance: VITAMIN D NOS
     Dosage: 500 INTERNATIONAL UNIT
     Route: 048
     Dates: start: 20110617, end: 20170307
  6. DENOSUMAB [Suspect]
     Active Substance: DENOSUMAB
     Indication: BREAST CANCER
     Dosage: 120 MILLIGRAM
     Route: 058
     Dates: start: 20110617, end: 20160223
  7. PANADOL [Concomitant]
     Active Substance: ACETAMINOPHEN
     Dosage: 1000 MILLIGRAM
     Route: 048
     Dates: start: 2011

REACTIONS (1)
  - Femur fracture [Recovered/Resolved]

NARRATIVE: CASE EVENT DATE: 20160410
